FAERS Safety Report 20144842 (Version 1)
Quarter: 2021Q4

REPORT INFORMATION
  Report Type: Spontaneous
  Country: JP (occurrence: JP)
  Receive Date: 20211203
  Receipt Date: 20211203
  Transmission Date: 20220303
  Serious: Yes (Death)
  Sender: FDA-Public Use
  Company Number: JP-CHUGAI-2021029718

PATIENT
  Age: 67 Year
  Sex: Female

DRUGS (3)
  1. AVASTIN [Suspect]
     Active Substance: BEVACIZUMAB
     Indication: Anal cancer
     Dosage: UNK
     Route: 041
     Dates: start: 20211014
  2. CAPECITABINE [Concomitant]
     Active Substance: CAPECITABINE
     Indication: Anal cancer
     Dosage: UNK
     Route: 048
     Dates: start: 20211014
  3. OXALIPLATIN [Concomitant]
     Active Substance: OXALIPLATIN
     Indication: Anal cancer
     Dosage: UNK
     Route: 041
     Dates: start: 20211014

REACTIONS (2)
  - Cardiac failure [Fatal]
  - Off label use [Unknown]
